FAERS Safety Report 22083975 (Version 2)
Quarter: 2023Q4

REPORT INFORMATION
  Report Type: Spontaneous
  Country: US (occurrence: US)
  Receive Date: 20230310
  Receipt Date: 20231101
  Transmission Date: 20240109
  Serious: Yes (Other)
  Sender: FDA-Public Use
  Company Number: US-PFIZER INC-2021077296

PATIENT
  Age: 87 Year
  Sex: Female

DRUGS (1)
  1. XELJANZ [Suspect]
     Active Substance: TOFACITINIB CITRATE
     Indication: Rheumatoid arthritis
     Dosage: 5 MG, 2X/DAY (TAKE 1 TAB BY MOUTH IN THE MORNING AND 1 TAB BEFORE BEDTIME)
     Route: 048

REACTIONS (3)
  - Drug dependence [Unknown]
  - Product dose omission issue [Unknown]
  - Product prescribing issue [Unknown]
